FAERS Safety Report 8006589-8 (Version None)
Quarter: 2011Q4

REPORT INFORMATION
  Report Type: 
  Country: None (occurrence: None)
  Receive Date: 20111227
  Receipt Date: 20111214
  Transmission Date: 20120403
  Serious: Yes (Congenital Anomaly, Other)
  Sender: FDA-Public Use
  Company Number: DK-ELI_LILLY_AND_COMPANY-DK201112005139

PATIENT

DRUGS (8)
  1. AKARIN [Concomitant]
     Dosage: UNK
  2. AKARIN [Concomitant]
     Dosage: UNK
  3. AKARIN [Concomitant]
     Dosage: 20 MG, UNK
     Route: 064
     Dates: end: 20051101
  4. FLUOXETINE HCL [Suspect]
     Indication: DEPRESSION
     Dosage: 20 MG, UNK
     Route: 064
     Dates: start: 20051101, end: 20060428
  5. AKARIN [Concomitant]
     Indication: DEPRESSION
     Dosage: 40 MG, UNK
     Route: 064
     Dates: end: 20050929
  6. AKARIN [Concomitant]
     Dosage: 40 MG, UNK
     Route: 064
     Dates: end: 20050929
  7. FLUOXETINE HCL [Suspect]
     Dosage: 20 MG, UNK
     Route: 064
     Dates: start: 20051101, end: 20060428
  8. AKARIN [Concomitant]
     Dosage: 20 MG, UNK
     Route: 064
     Dates: end: 20051101

REACTIONS (3)
  - CONGENITAL VESICOURETERIC REFLUX [None]
  - PSYCHOMOTOR RETARDATION [None]
  - FOETAL EXPOSURE DURING PREGNANCY [None]
